FAERS Safety Report 4662835-X (Version None)
Quarter: 2005Q2

REPORT INFORMATION
  Report Type: 
  Country: None (occurrence: None)
  Receive Date: 20050502
  Receipt Date: 20050224
  Transmission Date: 20051028
  Serious: No
  Sender: FDA-Public Use
  Company Number: 200510693US

PATIENT
  Sex: Female

DRUGS (6)
  1. KETEK [Suspect]
     Dosage: 800MG QD PO
     Route: 048
  2. KETEK [Suspect]
     Dosage: 400 MG QD PO
     Route: 048
  3. TINIDAZOLE [Suspect]
  4. CALCIUM GLUCONATE [Concomitant]
  5. SPORANOX [Concomitant]
  6. ZITHROMYCIN (ZITHROMAX) [Concomitant]

REACTIONS (1)
  - MUSCLE SPASMS [None]
